FAERS Safety Report 6206393-7 (Version None)
Quarter: 2009Q2

REPORT INFORMATION
  Report Type: 
  Country: None (occurrence: None)
  Receive Date: 20090528
  Receipt Date: 20090521
  Transmission Date: 20091009
  Serious: Yes (Hospitalization, Other)
  Sender: FDA-Public Use
  Company Number: US-BAYER-200921527NA

PATIENT
  Sex: Female

DRUGS (2)
  1. YAZ [Suspect]
     Indication: CONTRACEPTION
     Route: 048
  2. YASMIN [Suspect]
     Indication: CONTRACEPTION
     Route: 048

REACTIONS (4)
  - ANXIETY [None]
  - CHOLECYSTECTOMY [None]
  - FEAR [None]
  - PAIN [None]
